FAERS Safety Report 24792980 (Version 1)
Quarter: 2024Q4

REPORT INFORMATION
  Report Type: Spontaneous
  Country: US (occurrence: US)
  Receive Date: 20241231
  Receipt Date: 20241231
  Transmission Date: 20250115
  Serious: Yes (Other)
  Sender: TEVA
  Company Number: US-TEVA-VS-3250882

PATIENT
  Age: 76 Year
  Sex: Female

DRUGS (4)
  1. DAPSONE [Suspect]
     Active Substance: DAPSONE
     Indication: Lichen planus pemphigoides
     Route: 065
  2. CLOBETASOL [Concomitant]
     Active Substance: CLOBETASOL
     Indication: Rash pruritic
     Route: 061
  3. TRIAMCINOLONE [Concomitant]
     Active Substance: TRIAMCINOLONE
     Indication: Papule
     Route: 061
  4. PREDNISONE [Concomitant]
     Active Substance: PREDNISONE
     Indication: Lichen planus pemphigoides
     Route: 065

REACTIONS (1)
  - Dizziness [Unknown]
